FAERS Safety Report 10386276 (Version 1)
Quarter: 2014Q3

REPORT INFORMATION
  Report Type: Report from Study
  Country: JP (occurrence: JP)
  Receive Date: 20140815
  Receipt Date: 20140815
  Transmission Date: 20150326
  Serious: Yes (Hospitalization)
  Sender: FDA-Public Use
  Company Number: JP-009507513-1408JPN007853

PATIENT
  Age: 65 Year
  Sex: Male
  Weight: 79.1 kg

DRUGS (12)
  1. ALOSITOL [Concomitant]
     Active Substance: ALLOPURINOL
  2. METGLUCO [Concomitant]
     Active Substance: METFORMIN HYDROCHLORIDE
     Dosage: UNK
     Dates: start: 20111125
  3. GLACTIV [Suspect]
     Active Substance: SITAGLIPTIN
     Indication: TYPE 2 DIABETES MELLITUS
     Dosage: 50 MG, QD, AFTER BREAKFAST
     Route: 048
     Dates: start: 20101118, end: 20130412
  4. ADALAT CC [Concomitant]
     Active Substance: NIFEDIPINE
  5. AMARYL [Concomitant]
     Active Substance: GLIMEPIRIDE
     Dosage: 3MG
     Dates: start: 20130412
  6. ITOROL [Concomitant]
     Active Substance: ISOSORBIDE MONONITRATE
  7. AMARYL [Concomitant]
     Active Substance: GLIMEPIRIDE
     Dosage: 6MG
     Dates: end: 20131104
  8. DIOVAN [Concomitant]
     Active Substance: VALSARTAN
  9. TAKEPRON [Concomitant]
     Active Substance: LANSOPRAZOLE
     Dosage: UNK
     Dates: start: 20130108
  10. BAYER ASPIRIN [Concomitant]
     Active Substance: ASPIRIN
  11. PLAVIX [Concomitant]
     Active Substance: CLOPIDOGREL BISULFATE
     Dosage: UNK
     Dates: start: 20130109
  12. LIVALO [Concomitant]
     Active Substance: PITAVASTATIN CALCIUM
     Dosage: UNK
     Dates: start: 20120907

REACTIONS (1)
  - Myocardial infarction [Recovered/Resolved]

NARRATIVE: CASE EVENT DATE: 20130110
